FAERS Safety Report 10447519 (Version 3)
Quarter: 2014Q4

REPORT INFORMATION
  Report Type: Spontaneous
  Country: US (occurrence: US)
  Receive Date: 20140911
  Receipt Date: 20141124
  Transmission Date: 20150528
  Serious: No
  Sender: FDA-Public Use
  Company Number: US-PFIZER INC-2014252197

PATIENT
  Age: 32 Year
  Sex: Male
  Weight: 111.84 kg

DRUGS (6)
  1. HYDROCODONE [Concomitant]
     Active Substance: HYDROCODONE
     Dosage: UNK
     Dates: start: 201405
  2. XANAX [Concomitant]
     Active Substance: ALPRAZOLAM
     Dosage: UNK
     Dates: start: 201405
  3. ULTRAM [Suspect]
     Active Substance: TRAMADOL HYDROCHLORIDE
     Dosage: UNK
  4. TRAZODONE [Concomitant]
     Active Substance: TRAZODONE HYDROCHLORIDE
     Dosage: UNK
  5. NEURONTIN [Suspect]
     Active Substance: GABAPENTIN
     Dosage: 600 MG, 3X/DAY
     Route: 048
     Dates: start: 20140501, end: 20140602
  6. NEURONTIN [Suspect]
     Active Substance: GABAPENTIN
     Indication: POLYNEUROPATHY ALCOHOLIC
     Dosage: 2/2 X DAILY
     Route: 048
     Dates: start: 2012

REACTIONS (6)
  - Drug hypersensitivity [Unknown]
  - Blood triglycerides increased [Unknown]
  - Infection [Unknown]
  - White blood cell count increased [Unknown]
  - Peripheral swelling [Unknown]
  - Product use issue [Unknown]

NARRATIVE: CASE EVENT DATE: 2012
